FAERS Safety Report 21187137 (Version 1)
Quarter: 2022Q3

REPORT INFORMATION
  Report Type: Spontaneous
  Country: US (occurrence: None)
  Receive Date: 20220808
  Receipt Date: 20220808
  Transmission Date: 20221027
  Serious: Yes (Other)
  Sender: FDA-Public Use
  Company Number: None

PATIENT
  Sex: Female

DRUGS (1)
  1. JAKAFI [Suspect]
     Active Substance: RUXOLITINIB
     Dosage: FREQUENCY : TWICE A DAY;?
     Route: 048

REACTIONS (12)
  - Blood pressure increased [None]
  - Mental impairment [None]
  - Memory impairment [None]
  - Swelling face [None]
  - Headache [None]
  - Cardiac disorder [None]
  - Cardiac murmur [None]
  - Cardiac discomfort [None]
  - Paraesthesia [None]
  - Peripheral coldness [None]
  - Skin discolouration [None]
  - Feeling cold [None]
